FAERS Safety Report 9702496 (Version 1)
Quarter: 2013Q4

REPORT INFORMATION
  Report Type: Spontaneous
  Country: CH (occurrence: None)
  Receive Date: 20131120
  Receipt Date: 20131120
  Transmission Date: 20140711
  Serious: Yes (Life-Threatening, Hospitalization)
  Sender: FDA-Public Use
  Company Number: 2013/202

PATIENT
  Age: 61 Year
  Sex: Female

DRUGS (4)
  1. IBANDRONATE [Suspect]
     Indication: OSTEOPOROSIS
     Route: 042
     Dates: start: 201006, end: 201009
  2. ATORVASTATIN [Concomitant]
  3. HYDROXYCHLOROQUINE [Concomitant]
  4. ACETYLSALICYLIC ACID (ASPIRIN) [Concomitant]

REACTIONS (4)
  - Drug-induced liver injury [None]
  - Hepatitis cholestatic [None]
  - Cholangitis [None]
  - Hepatotoxicity [None]
